FAERS Safety Report 17515216 (Version 2)
Quarter: 2021Q3

REPORT INFORMATION
  Report Type: Spontaneous
  Country: US (occurrence: US)
  Receive Date: 20200309
  Receipt Date: 20210716
  Transmission Date: 20211014
  Serious: Yes (Other)
  Sender: FDA-Public Use
  Company Number: US-TEVA-2020-US-1195554

PATIENT
  Age: 64 Year
  Sex: Female

DRUGS (5)
  1. VALSARTAN/HYDROCHLOROTHIAZIDE MYLAN [Suspect]
     Active Substance: HYDROCHLOROTHIAZIDE\VALSARTAN
     Indication: BLOOD PRESSURE INCREASED
     Dosage: DOSAGE: 320/25 MG
     Route: 065
     Dates: start: 201301, end: 201501
  2. VALSARTAN/HYDROCHLOROTHIAZIDE SANDOZ [Suspect]
     Active Substance: HYDROCHLOROTHIAZIDE\VALSARTAN
     Indication: BLOOD PRESSURE INCREASED
     Dosage: DOSAGE: 320/25 MG
     Route: 065
     Dates: start: 201201, end: 201212
  3. VALSARTAN/HYDROCHLOROTHIAZIDE SOLCO [Suspect]
     Active Substance: HYDROCHLOROTHIAZIDE\VALSARTAN
     Indication: BLOOD PRESSURE INCREASED
     Dosage: DOSAGE: 320/25 MG
     Route: 065
     Dates: start: 201703, end: 201806
  4. VALSARTAN/HYDROCHLOROTHIAZIDE NOVARTIS [Suspect]
     Active Substance: HYDROCHLOROTHIAZIDE\VALSARTAN
     Indication: BLOOD PRESSURE INCREASED
     Dosage: DOSAGE: 320/25 MG
     Route: 065
     Dates: start: 201103, end: 201212
  5. VALSARTAN/HYDROCHLOROTHIAZIDE AUROBINDO [Suspect]
     Active Substance: HYDROCHLOROTHIAZIDE\VALSARTAN
     Indication: BLOOD PRESSURE INCREASED
     Dosage: DOSAGE: 320/25 MG
     Route: 065
     Dates: start: 201502, end: 201703

REACTIONS (1)
  - Chronic myeloid leukaemia [Unknown]
